FAERS Safety Report 24311432 (Version 1)
Quarter: 2024Q3

REPORT INFORMATION
  Report Type: Spontaneous
  Country: CN (occurrence: CN)
  Receive Date: 20240912
  Receipt Date: 20240912
  Transmission Date: 20241016
  Serious: Yes (Death, Other)
  Sender: Vantive US Healthcare
  Company Number: CN-VANTIVE-2024VAN019536

PATIENT

DRUGS (1)
  1. EXTRANEAL [Suspect]
     Active Substance: CALCIUM CHLORIDE\ICODEXTRIN\MAGNESIUM CHLORIDE\SODIUM CHLORIDE\SODIUM LACTATE
     Indication: Peritoneal dialysis
     Dosage: UNK
     Route: 033
     Dates: start: 20240730

REACTIONS (8)
  - Gastrointestinal haemorrhage [Fatal]
  - Sepsis [Fatal]
  - Shock [Fatal]
  - Condition aggravated [Unknown]
  - Peritoneal cloudy effluent [Unknown]
  - Peritoneal dialysis complication [Unknown]
  - Device issue [Unknown]
  - Therapeutic product ineffective [Unknown]
